FAERS Safety Report 6780326-7 (Version None)
Quarter: 2010Q2

REPORT INFORMATION
  Report Type: 
  Country: None (occurrence: None)
  Receive Date: 20100618
  Receipt Date: 20100609
  Transmission Date: 20101027
  Serious: Yes (Hospitalization, Other)
  Sender: FDA-Public Use
  Company Number: FR-ALLERGAN-1007647US

PATIENT
  Age: 48 Year
  Sex: Female
  Weight: 558 kg

DRUGS (11)
  1. BOTOX [Suspect]
     Indication: MUSCLE SPASTICITY
     Dosage: 170 UNITS, SINGLE
     Dates: start: 20100128, end: 20100128
  2. LIORESAL [Suspect]
     Indication: MUSCLE SPASTICITY
     Dosage: 75 MG, QD
     Route: 048
     Dates: start: 20091012, end: 20100503
  3. PROZAC [Concomitant]
     Indication: DEPRESSION
     Dosage: 20 MG, QD
     Route: 048
     Dates: start: 20091012
  4. KEPPRA [Concomitant]
     Indication: EPILEPSY
     Dosage: 1000 MG, QD
     Route: 048
     Dates: start: 20091012
  5. DAFALGAN [Concomitant]
     Indication: PAIN IN EXTREMITY
     Dosage: 1500 MG, QD
     Dates: start: 20091012
  6. EFFERALGAN CODEINE [Concomitant]
     Indication: DRUG USE FOR UNKNOWN INDICATION
     Dosage: 1-3 CAPS DAILY
     Dates: start: 20091223
  7. PANTOPRAZOLE SODIUM [Concomitant]
     Indication: DRUG USE FOR UNKNOWN INDICATION
     Dosage: 40 MG, QD
     Dates: start: 20091012
  8. KARDEGIC [Concomitant]
     Indication: ISCHAEMIC STROKE
     Dosage: 160 MG, QD
     Dates: start: 20091012
  9. FORLAX [Concomitant]
     Indication: CONSTIPATION
     Dosage: 2DF DAILY
     Dates: start: 20091012
  10. TAHOR [Concomitant]
     Indication: DYSLIPIDAEMIA
     Dosage: 40 MG, QD
     Route: 048
     Dates: start: 20091012
  11. TAHOR [Concomitant]
     Indication: ISCHAEMIC STROKE

REACTIONS (1)
  - EPILEPSY [None]
